FAERS Safety Report 15466996 (Version 8)
Quarter: 2022Q1

REPORT INFORMATION
  Report Type: Spontaneous
  Country: US (occurrence: US)
  Receive Date: 20181005
  Receipt Date: 20220329
  Transmission Date: 20220423
  Serious: Yes (Life-Threatening, Hospitalization, Other)
  Sender: FDA-Public Use
  Company Number: US-BIOGEN-2018BI00638798

PATIENT
  Age: 51 Year
  Sex: Female

DRUGS (4)
  1. TYSABRI [Suspect]
     Active Substance: NATALIZUMAB
     Indication: Multiple sclerosis
     Dosage: INFUSED OVER 1 HOUR
     Route: 050
     Dates: start: 20140929, end: 20160517
  2. TYSABRI [Suspect]
     Active Substance: NATALIZUMAB
     Route: 065
     Dates: start: 20181017, end: 20210630
  3. TYSABRI [Suspect]
     Active Substance: NATALIZUMAB
     Route: 065
     Dates: start: 20140929, end: 20171220
  4. TYSABRI [Suspect]
     Active Substance: NATALIZUMAB
     Route: 065
     Dates: start: 20181017, end: 20210930

REACTIONS (31)
  - Ankle fracture [Not Recovered/Not Resolved]
  - Syncope [Not Recovered/Not Resolved]
  - Central nervous system vasculitis [Unknown]
  - Nerve injury [Unknown]
  - Thrombosis [Unknown]
  - Deep vein thrombosis [Recovered/Resolved]
  - Pneumonia [Recovered/Resolved]
  - Poor quality sleep [Unknown]
  - Cognitive disorder [Unknown]
  - Motor dysfunction [Unknown]
  - Memory impairment [Not Recovered/Not Resolved]
  - Insomnia [Not Recovered/Not Resolved]
  - Fibromyalgia [Not Recovered/Not Resolved]
  - Mental disorder [Unknown]
  - Bursitis [Unknown]
  - Tendonitis [Unknown]
  - Arthritis [Unknown]
  - Pathogen resistance [Unknown]
  - Urinary retention [Unknown]
  - Hemianaesthesia [Unknown]
  - Pain [Unknown]
  - Hypoaesthesia [Unknown]
  - Chronic obstructive pulmonary disease [Not Recovered/Not Resolved]
  - Gait disturbance [Not Recovered/Not Resolved]
  - Migraine [Unknown]
  - Post-traumatic stress disorder [Not Recovered/Not Resolved]
  - Asthenia [Unknown]
  - Anxiety [Not Recovered/Not Resolved]
  - Headache [Unknown]
  - Arthralgia [Unknown]
  - Depression [Unknown]

NARRATIVE: CASE EVENT DATE: 20151215
